FAERS Safety Report 14962491 (Version 16)
Quarter: 2022Q1

REPORT INFORMATION
  Report Type: Spontaneous
  Country: US (occurrence: US)
  Receive Date: 20180601
  Receipt Date: 20220113
  Transmission Date: 20220423
  Serious: Yes (Hospitalization, Other)
  Sender: FDA-Public Use
  Company Number: US-PFIZER INC-2018224561

PATIENT
  Age: 59 Year
  Sex: Female
  Weight: 57.15 kg

DRUGS (4)
  1. ATIVAN [Suspect]
     Active Substance: LORAZEPAM
     Indication: Generalised anxiety disorder
     Dosage: 2 MG, 3X/DAY
  2. ATIVAN [Suspect]
     Active Substance: LORAZEPAM
     Dosage: 2 MG, 3X/DAY
     Dates: start: 20180428
  3. ATIVAN [Suspect]
     Active Substance: LORAZEPAM
     Dosage: 2 MG
     Route: 048
  4. TRILEPTAL [Concomitant]
     Active Substance: OXCARBAZEPINE
     Indication: Generalised anxiety disorder
     Dosage: 300 MG, 1X/DAY
     Dates: start: 2008

REACTIONS (25)
  - Rib fracture [Not Recovered/Not Resolved]
  - Muscle strain [Not Recovered/Not Resolved]
  - Hip fracture [Unknown]
  - Injury [Not Recovered/Not Resolved]
  - Fracture [Unknown]
  - Drug ineffective [Unknown]
  - Insomnia [Not Recovered/Not Resolved]
  - Back injury [Not Recovered/Not Resolved]
  - Disturbance in attention [Not Recovered/Not Resolved]
  - Decreased appetite [Unknown]
  - Irregular sleep wake rhythm disorder [Unknown]
  - Suspected counterfeit product [Unknown]
  - Balance disorder [Unknown]
  - Asthenia [Unknown]
  - Fatigue [Unknown]
  - Gait disturbance [Unknown]
  - Fall [Unknown]
  - Malaise [Unknown]
  - Dyspnoea [Unknown]
  - Arthralgia [Unknown]
  - Abdominal pain upper [Unknown]
  - Depression [Unknown]
  - Renal pain [Unknown]
  - Product taste abnormal [Unknown]
  - Product physical issue [Unknown]

NARRATIVE: CASE EVENT DATE: 20180101
